FAERS Safety Report 9136228 (Version 1)
Quarter: 2013Q1

REPORT INFORMATION
  Report Type: Spontaneous
  Country: US (occurrence: US)
  Receive Date: 20130304
  Receipt Date: 20130304
  Transmission Date: 20140127
  Serious: No
  Sender: FDA-Public Use
  Company Number: US-ABBOTT-12P-163-0948918-00

PATIENT
  Age: 84 Year
  Sex: Male
  Weight: 65.83 kg

DRUGS (3)
  1. ANDROGEL 1% [Suspect]
     Indication: BLOOD TESTOSTERONE DECREASED
     Dosage: PACKETS, 1 IN 1 DAYS
  2. UNKNOWN MEDICATION [Concomitant]
     Indication: BLOOD PRESSURE
  3. UNKNOWN MEDICATION [Concomitant]
     Dosage: NEW DOSE. DOUBLE DOSE
     Dates: start: 20120620

REACTIONS (1)
  - Blood pressure increased [Unknown]
